FAERS Safety Report 6982648-3 (Version None)
Quarter: 2010Q3

REPORT INFORMATION
  Report Type: 
  Country: None (occurrence: None)
  Receive Date: 20100914
  Receipt Date: 20100305
  Transmission Date: 20110219
  Serious: Yes (Other)
  Sender: FDA-Public Use
  Company Number: US-PFIZER INC-2010029139

PATIENT
  Sex: Female
  Weight: 55.338 kg

DRUGS (5)
  1. LYRICA [Suspect]
     Indication: TRIGEMINAL NEURALGIA
     Dosage: 50 MG, 1X/DAY
  2. LYRICA [Suspect]
     Dosage: 50 MG, 3X/WEEK
     Route: 048
     Dates: start: 20090101
  3. LYRICA [Suspect]
     Dosage: 50 MG, 2XWEEK
     Dates: start: 20090101
  4. NORVASC [Concomitant]
     Indication: HYPERTENSION
     Dosage: 5 MG, 2X/DAY
     Route: 048
  5. NORVASC [Concomitant]
     Dosage: FREQUENCY: 2X/DAY,
     Route: 048

REACTIONS (3)
  - NECK PAIN [None]
  - PAIN IN EXTREMITY [None]
  - PARAESTHESIA [None]
